FAERS Safety Report 9402378 (Version 1)
Quarter: 2013Q3

REPORT INFORMATION
  Report Type: Spontaneous
  Country: US (occurrence: US)
  Receive Date: 20130716
  Receipt Date: 20130716
  Transmission Date: 20140515
  Serious: No
  Sender: FDA-Public Use
  Company Number: US-ELI_LILLY_AND_COMPANY-US201307004034

PATIENT
  Sex: Female

DRUGS (4)
  1. ZYPREXA [Suspect]
     Indication: BIPOLAR DISORDER
     Dosage: 2.5 MG, QOD
  2. ZYPREXA [Suspect]
     Dosage: 5 MG, QOD
  3. ZYPREXA [Suspect]
     Dosage: 10 MG, UNKNOWN
  4. DEPAKOTE [Concomitant]
     Indication: AFFECTIVE DISORDER
     Dosage: 1 DF, UNKNOWN

REACTIONS (5)
  - Breast tenderness [Unknown]
  - Breast enlargement [Unknown]
  - Premenstrual syndrome [Unknown]
  - Fibrocystic breast disease [Unknown]
  - Weight increased [Unknown]
